FAERS Safety Report 7248980 (Version 2)
Quarter: 2013Q3

REPORT INFORMATION
  Report Type: Spontaneous
  Country: DE (occurrence: None)
  Receive Date: 20091231
  Receipt Date: 20130709
  Transmission Date: 20140515
  Serious: Yes (Hospitalization, Disabling, Other)
  Sender: FDA-Public Use
  Company Number: AUR-APL-2009-01617

PATIENT
  Age: 76 Year
  Sex: Male

DRUGS (1)
  1. CLINDAMYCIN (CLINDAMYCIN) [Suspect]
     Indication: WOUND INFECTION
     Dosage: 300MG - TID - ORAL
     Route: 048

REACTIONS (9)
  - Drug eruption [None]
  - Foot amputation [None]
  - Osteomyelitis [None]
  - Vasculitis necrotising [None]
  - Gangrene [None]
  - Ulcer [None]
  - Blister [None]
  - Rash [None]
  - Wound necrosis [None]
